FAERS Safety Report 13246768 (Version 1)
Quarter: 2017Q1

REPORT INFORMATION
  Report Type: Report from Study
  Country: JP (occurrence: JP)
  Receive Date: 20170217
  Receipt Date: 20170217
  Transmission Date: 20170428
  Serious: Yes (Hospitalization)
  Sender: FDA-Public Use
  Company Number: JP-SA-2016SA118537

PATIENT
  Age: 82 Year
  Sex: Male

DRUGS (3)
  1. REGPARA [Suspect]
     Active Substance: CINACALCET HYDROCHLORIDE
     Route: 048
     Dates: start: 20160725, end: 20160916
  2. PHOSBLOCK [Suspect]
     Active Substance: FERRIC HYDROXIDE
     Route: 048
     Dates: start: 20150615
  3. REGPARA [Suspect]
     Active Substance: CINACALCET HYDROCHLORIDE
     Route: 048
     Dates: start: 20160413, end: 20160704

REACTIONS (3)
  - Fracture [Recovering/Resolving]
  - Hospitalisation [Recovering/Resolving]
  - Arteriovenous fistula site complication [Recovering/Resolving]

NARRATIVE: CASE EVENT DATE: 20151022
